FAERS Safety Report 16316736 (Version 1)
Quarter: 2019Q2

REPORT INFORMATION
  Report Type: Spontaneous
  Country: BY (occurrence: BY)
  Receive Date: 20190515
  Receipt Date: 20190515
  Transmission Date: 20190711
  Serious: Yes (Life-Threatening, Other)
  Sender: FDA-Public Use
  Company Number: PHHY2019BY109879

PATIENT
  Age: 53 Year
  Sex: Male
  Weight: 60 kg

DRUGS (28)
  1. ESTIVAN LYO [Concomitant]
     Indication: HIV INFECTION
     Dosage: UNK
     Route: 065
     Dates: start: 20180724, end: 20181022
  2. ESTIVAN LYO [Concomitant]
     Route: 065
     Dates: start: 20181127
  3. DELAMANID [Suspect]
     Active Substance: DELAMANID
     Indication: TUBERCULOSIS
     Dosage: 200 OT, QD
     Route: 048
     Dates: start: 20180724, end: 20181022
  4. CYCLOSERINE. [Suspect]
     Active Substance: CYCLOSERINE
     Indication: TUBERCULOSIS
     Dosage: 750 OT, QD
     Route: 048
     Dates: start: 20180724, end: 20181022
  5. VIT B1 [Concomitant]
     Active Substance: THIAMINE HYDROCHLORIDE
     Indication: PRODUCT USED FOR UNKNOWN INDICATION
     Route: 065
     Dates: start: 20180727
  6. NEIROMIDIN [Concomitant]
     Active Substance: IPIDACRINE
     Indication: PRODUCT USED FOR UNKNOWN INDICATION
     Dosage: UNK
     Route: 065
     Dates: start: 20180727, end: 20180806
  7. TENOF EM [Concomitant]
     Indication: PRODUCT USED FOR UNKNOWN INDICATION
     Route: 065
     Dates: start: 20180724, end: 20181022
  8. NEUROVIT [Concomitant]
     Indication: PRODUCT USED FOR UNKNOWN INDICATION
     Route: 065
     Dates: start: 20180815, end: 20180825
  9. EUPHYLLIN [Concomitant]
     Indication: PRODUCT USED FOR UNKNOWN INDICATION
     Route: 065
  10. MOXIFLOXACIN. [Suspect]
     Active Substance: MOXIFLOXACIN
     Dosage: 400 OT, QD
     Route: 048
     Dates: start: 201811
  11. LINEZOLID. [Suspect]
     Active Substance: LINEZOLID
     Indication: TUBERCULOSIS
     Dosage: 600 OT, QD
     Route: 048
     Dates: start: 20180724, end: 20181022
  12. CO TRIMOXAZOL [Suspect]
     Active Substance: SULFAMETHOXAZOLE\TRIMETHOPRIM
     Dosage: 2 DF, QD
     Route: 065
     Dates: start: 20181127
  13. BISOPROLOL [Concomitant]
     Active Substance: BISOPROLOL
     Indication: PRODUCT USED FOR UNKNOWN INDICATION
     Route: 065
     Dates: start: 20180724, end: 20181022
  14. TENOF EM [Concomitant]
     Dosage: UNK
     Route: 065
     Dates: start: 20181127
  15. ZOPICLON [Concomitant]
     Active Substance: ZOPICLONE
     Indication: PRODUCT USED FOR UNKNOWN INDICATION
     Route: 065
     Dates: start: 20180724, end: 20181022
  16. CO TRIMOXAZOL [Suspect]
     Active Substance: SULFAMETHOXAZOLE\TRIMETHOPRIM
     Indication: PRODUCT USED FOR UNKNOWN INDICATION
     Dosage: 2 DF, QD
     Route: 065
     Dates: start: 20180724, end: 20181022
  17. FLUCONAZOLE. [Concomitant]
     Active Substance: FLUCONAZOLE
     Indication: PRODUCT USED FOR UNKNOWN INDICATION
     Route: 065
  18. FERRONAL [Concomitant]
     Indication: PRODUCT USED FOR UNKNOWN INDICATION
     Route: 065
  19. CLOFAZIMINE [Suspect]
     Active Substance: CLOFAZIMINE
     Indication: TUBERCULOSIS
     Dosage: 200 OT, QD
     Route: 048
     Dates: start: 20180724, end: 20181022
  20. CLOFAZIMINE [Suspect]
     Active Substance: CLOFAZIMINE
     Dosage: 100 OT, QD
     Route: 048
     Dates: start: 201811
  21. MOXIFLOXACIN. [Suspect]
     Active Substance: MOXIFLOXACIN
     Indication: TUBERCULOSIS
     Dosage: 400 OT, QD
     Route: 048
     Dates: start: 20180724, end: 20181022
  22. AMITRIPTYLINE [Concomitant]
     Active Substance: AMITRIPTYLINE
     Indication: PRODUCT USED FOR UNKNOWN INDICATION
     Route: 065
  23. CYCLOSERINE. [Suspect]
     Active Substance: CYCLOSERINE
     Dosage: 750 OT, QD
     Route: 048
     Dates: start: 201811
  24. VITAMIN B6 [Concomitant]
     Active Substance: PYRIDOXINE HYDROCHLORIDE
     Indication: PRODUCT USED FOR UNKNOWN INDICATION
     Dosage: UNK
     Route: 065
     Dates: start: 2018, end: 20180806
  25. ONDANSETRON [Concomitant]
     Active Substance: ONDANSETRON
     Indication: PRODUCT USED FOR UNKNOWN INDICATION
     Route: 065
  26. DELAMANID [Suspect]
     Active Substance: DELAMANID
     Dosage: 200 OT, QD
     Route: 048
     Dates: start: 201811
  27. LINEZOLID. [Suspect]
     Active Substance: LINEZOLID
     Dosage: 600 OT, QD
     Route: 048
     Dates: start: 201811
  28. ZOPICLON [Concomitant]
     Active Substance: ZOPICLONE
     Dosage: UNK
     Route: 065
     Dates: start: 20181130

REACTIONS (23)
  - Gastric ulcer [Unknown]
  - Erosive oesophagitis [Unknown]
  - Renal cyst [Unknown]
  - Nausea [Unknown]
  - Gastric varices [Unknown]
  - Varices oesophageal [Unknown]
  - Asthenia [Unknown]
  - Dyspepsia [Unknown]
  - Calculus urinary [Unknown]
  - Diarrhoea [Unknown]
  - Nephropathy toxic [Unknown]
  - Haemoglobin decreased [Recovered/Resolved]
  - Portal hypertension [Unknown]
  - Mucosal discolouration [Unknown]
  - Gastrointestinal haemorrhage [Recovered/Resolved]
  - Alcohol poisoning [Unknown]
  - Chronic kidney disease [Unknown]
  - Skin discolouration [Unknown]
  - Decreased appetite [Unknown]
  - Hepatic cirrhosis [Unknown]
  - Hepatomegaly [Unknown]
  - Hepatorenal failure [Recovered/Resolved with Sequelae]
  - Vomiting [Unknown]

NARRATIVE: CASE EVENT DATE: 20180910
